FAERS Safety Report 9448121 (Version 1)
Quarter: 2013Q3

REPORT INFORMATION
  Report Type: Spontaneous
  Country: US (occurrence: None)
  Receive Date: 20130807
  Receipt Date: 20130807
  Transmission Date: 20140515
  Serious: Yes (Disabling, Other)
  Sender: FDA-Public Use
  Company Number: None

PATIENT
  Age: 67 Year
  Sex: Male
  Weight: 90.72 kg

DRUGS (1)
  1. CLOPIDOGREL [Suspect]
     Indication: CEREBROVASCULAR ACCIDENT
     Dosage: ONE PILL ONCE DAILY TAKEN BY MOUTH
     Route: 048
     Dates: start: 20110519, end: 20130805

REACTIONS (9)
  - Haemorrhage [None]
  - Urticaria [None]
  - Chest pain [None]
  - Nausea [None]
  - Influenza like illness [None]
  - Swelling face [None]
  - Pharyngeal oedema [None]
  - Local swelling [None]
  - Local swelling [None]
